FAERS Safety Report 6437120-6 (Version None)
Quarter: 2009Q4

REPORT INFORMATION
  Report Type: 
  Country: None (occurrence: None)
  Receive Date: 20091112
  Receipt Date: 20090903
  Transmission Date: 20100525
  Serious: Yes (Death)
  Sender: FDA-Public Use
  Company Number: HU-ELI_LILLY_AND_COMPANY-HU200909000793

PATIENT
  Age: 55 Year
  Sex: Male

DRUGS (4)
  1. ALIMTA [Suspect]
     Indication: NON-SMALL CELL LUNG CANCER
     Dosage: 500 MG/M2, OTHER
     Route: 042
     Dates: start: 20090204
  2. INSULIN [Concomitant]
     Indication: DIABETES MELLITUS
  3. VITAMIN B-12 [Concomitant]
     Dosage: UNK, UNKNOWN
  4. FOLIC ACID [Concomitant]
     Dosage: UNK, UNKNOWN

REACTIONS (1)
  - HYPOGLYCAEMIC COMA [None]
